FAERS Safety Report 8964374 (Version 2)
Quarter: 2013Q1

REPORT INFORMATION
  Report Type: Spontaneous
  Country: US (occurrence: US)
  Receive Date: 20121214
  Receipt Date: 20130123
  Transmission Date: 20140127
  Serious: Yes (Death, Hospitalization, Other)
  Sender: FDA-Public Use
  Company Number: US-PFIZER INC-2012314180

PATIENT
  Age: 48 Year
  Sex: Female
  Weight: 63 kg

DRUGS (2)
  1. LYRICA [Suspect]
     Indication: DIABETIC NEUROPATHY
     Dosage: UNK
     Dates: start: 20121001
  2. PRILOSEC [Concomitant]
     Indication: GASTRIC DISORDER
     Dosage: UNK

REACTIONS (5)
  - Brain hypoxia [Fatal]
  - Somnolence [Unknown]
  - Feeling cold [Unknown]
  - Pallor [Unknown]
  - Intentional drug misuse [Unknown]
